FAERS Safety Report 13640604 (Version 1)
Quarter: 2017Q2

REPORT INFORMATION
  Report Type: Spontaneous
  Country: US (occurrence: US)
  Receive Date: 20170609
  Receipt Date: 20170609
  Transmission Date: 20170830
  Serious: Yes (Hospitalization)
  Sender: FDA-Public Use
  Company Number: None

PATIENT
  Age: 58 Year
  Sex: Male

DRUGS (1)
  1. METHOTREXATE 50MG/2ML HOSPIRA  WORLDWIDE, INC. [Suspect]
     Active Substance: METHOTREXATE
     Indication: PSORIATIC ARTHROPATHY
     Dosage: 0.4ML QWEEK INJECTION
     Dates: start: 20090911

REACTIONS (2)
  - Surgery [None]
  - Therapy cessation [None]
